FAERS Safety Report 16235288 (Version 3)
Quarter: 2019Q2

REPORT INFORMATION
  Report Type: Report from Study
  Country: US (occurrence: US)
  Receive Date: 20190424
  Receipt Date: 20190510
  Transmission Date: 20190711
  Serious: Yes (Hospitalization)
  Sender: FDA-Public Use
  Company Number: US-ACTELION-A-NJ2018-170868

PATIENT
  Age: 48 Year
  Sex: Male
  Weight: 104.31 kg

DRUGS (4)
  1. TYVASO [Concomitant]
     Active Substance: TREPROSTINIL
  2. REMODULIN [Suspect]
     Active Substance: TREPROSTINIL
     Indication: PRODUCT USED FOR UNKNOWN INDICATION
     Route: 065
  3. OPSUMIT [Suspect]
     Active Substance: MACITENTAN
     Indication: PULMONARY HYPERTENSION
     Dosage: 10 MG, QD
     Route: 048
  4. ADCIRCA [Concomitant]
     Active Substance: TADALAFIL

REACTIONS (13)
  - Pyrexia [Unknown]
  - Dyspnoea [Unknown]
  - Productive cough [Unknown]
  - Therapy change [Unknown]
  - Flushing [Unknown]
  - Headache [Recovered/Resolved]
  - Catheter site pain [Unknown]
  - Oxygen saturation decreased [Unknown]
  - Disease progression [Unknown]
  - Catheter site rash [Unknown]
  - Complication associated with device [Unknown]
  - Cough [Recovered/Resolved]
  - Catheter site erythema [Unknown]

NARRATIVE: CASE EVENT DATE: 20180409
